FAERS Safety Report 4502994-2 (Version None)
Quarter: 2004Q4

REPORT INFORMATION
  Report Type: 
  Country: None (occurrence: None)
  Receive Date: 20041112
  Receipt Date: 20041031
  Transmission Date: 20050328
  Serious: Yes (Hospitalization, Other)
  Sender: FDA-Public Use
  Company Number: HQWYE189501NOV04

PATIENT
  Age: 52 Year
  Sex: Female

DRUGS (4)
  1. MYLOTARG [Suspect]
     Indication: ACUTE MYELOID LEUKAEMIA
     Dosage: 15 MG 1X PER 2 WK, INTRAVENOUS
     Route: 042
     Dates: start: 20041004, end: 20041018
  2. LEVAQUIN [Concomitant]
  3. HYDREA [Concomitant]
  4. DECADRON [Concomitant]

REACTIONS (5)
  - GROIN PAIN [None]
  - HAEMOGLOBIN DECREASED [None]
  - LIVEDO RETICULARIS [None]
  - PLATELET COUNT DECREASED [None]
  - WHITE BLOOD CELL COUNT DECREASED [None]
